FAERS Safety Report 25336422 (Version 1)
Quarter: 2025Q2

REPORT INFORMATION
  Report Type: Spontaneous
  Country: US (occurrence: US)
  Receive Date: 20250520
  Receipt Date: 20250520
  Transmission Date: 20250716
  Serious: Yes (Hospitalization)
  Sender: AMGEN
  Company Number: US-AMGEN-USASP2025095440

PATIENT
  Age: 76 Year
  Sex: Female

DRUGS (20)
  1. REPATHA [Suspect]
     Active Substance: EVOLOCUMAB
     Indication: Blood cholesterol abnormal
     Route: 065
     Dates: start: 2024
  2. REPATHA [Suspect]
     Active Substance: EVOLOCUMAB
     Dosage: 140 MILLIGRAM, Q2WK
     Route: 065
     Dates: start: 202501
  3. REPATHA [Suspect]
     Active Substance: EVOLOCUMAB
     Route: 065
  4. ELIQUIS [Concomitant]
     Active Substance: APIXABAN
     Indication: Atrial fibrillation
  5. ALLOPURINOL [Concomitant]
     Active Substance: ALLOPURINOL
  6. AMOXICILLIN [Concomitant]
     Active Substance: AMOXICILLIN
  7. ASCORBIC ACID [Concomitant]
     Active Substance: ASCORBIC ACID
  8. DICLOFENAC [Concomitant]
     Active Substance: DICLOFENAC
  9. NEURONTIN [Concomitant]
     Active Substance: GABAPENTIN
  10. LASIX [Concomitant]
     Active Substance: FUROSEMIDE
  11. GLUCOTROL [Concomitant]
     Active Substance: GLIPIZIDE
  12. GLUCOSAMINE [Concomitant]
     Active Substance: GLUCOSAMINE
  13. HYDROCORTISONE [Concomitant]
     Active Substance: HYDROCORTISONE
  14. ATARAX [Concomitant]
     Active Substance: HYDROXYZINE HYDROCHLORIDE
  15. HUMALOG [Concomitant]
     Active Substance: INSULIN LISPRO
  16. TOPROL XL [Concomitant]
     Active Substance: METOPROLOL SUCCINATE
  17. NEXIUM [Concomitant]
     Active Substance: ESOMEPRAZOLE MAGNESIUM
  18. NYSTATIN [Concomitant]
     Active Substance: NYSTATIN
  19. NITROGLYCERIN [Concomitant]
     Active Substance: NITROGLYCERIN
  20. SODIUM BICARBONATE [Concomitant]
     Active Substance: SODIUM BICARBONATE

REACTIONS (5)
  - Sepsis [Recovered/Resolved]
  - Wrong technique in product usage process [Unknown]
  - Accidental exposure to product [Unknown]
  - Wound infection [Unknown]
  - Gout [Unknown]

NARRATIVE: CASE EVENT DATE: 20240901
